FAERS Safety Report 9908925 (Version 2)
Quarter: 2014Q1

REPORT INFORMATION
  Report Type: Spontaneous
  Country: DE (occurrence: DE)
  Receive Date: 20140219
  Receipt Date: 20140325
  Transmission Date: 20141002
  Serious: Yes (Other)
  Sender: FDA-Public Use
  Company Number: DE-B.I. PHARMACEUTICALS,INC./RIDGEFIELD-2014-BI-06966DE

PATIENT
  Age: 84 Year
  Sex: Female
  Weight: 56 kg

DRUGS (9)
  1. PRADAXA [Suspect]
     Indication: BRADYARRHYTHMIA
     Dosage: 220 MG
     Route: 065
     Dates: start: 20140204, end: 20140206
  2. PRADAXA [Suspect]
     Indication: ATRIAL FIBRILLATION
  3. METOPROLOL [Concomitant]
     Indication: HYPERTENSION
     Dosage: 47.5 MG
     Route: 065
  4. L-THYROXIN [Concomitant]
     Indication: HYPOTHYROIDISM
     Dosage: 50 MG
     Route: 065
  5. L-THYROXIN [Concomitant]
     Indication: THYROIDITIS
  6. PANTOPRAZOL [Concomitant]
     Route: 065
  7. NOVALGIN [Concomitant]
     Route: 065
  8. AMPHO MORONAL [Concomitant]
     Indication: OESOPHAGITIS
     Dosage: 4 ML
     Route: 065
  9. AMPHO MORONAL [Concomitant]
     Indication: CANDIDA INFECTION

REACTIONS (9)
  - Embolism [Unknown]
  - Infarction [Unknown]
  - Ischaemia [Unknown]
  - Neoplasm [Unknown]
  - Cerebral infarction [Unknown]
  - Wernicke-Korsakoff syndrome [Unknown]
  - Hallucination [Unknown]
  - Disturbance in attention [Unknown]
  - Delusion [Unknown]
